FAERS Safety Report 5603406-8 (Version None)
Quarter: 2008Q1

REPORT INFORMATION
  Report Type: 
  Country: None (occurrence: None)
  Receive Date: 20080122
  Receipt Date: 20080118
  Transmission Date: 20080703
  Serious: Yes (Hospitalization)
  Sender: FDA-Public Use
  Company Number: THQ2008A00023

PATIENT
  Age: 77 Year
  Sex: Female

DRUGS (8)
  1. LANSOPRAZOLE [Suspect]
     Indication: GASTROOESOPHAGEAL REFLUX DISEASE
     Dosage: 30 MG (30 MG, 1 IN 1 D)
  2. LANSOPRAZOLE [Suspect]
     Indication: HIATUS HERNIA
     Dosage: 30 MG (30 MG, 1 IN 1 D)
  3. LANSOPRAZOLE [Suspect]
     Indication: OESOPHAGITIS
     Dosage: 30 MG (30 MG, 1 IN 1 D)
  4. FEVERFEW (TANACETUM PARTHENIUM) [Suspect]
  5. GARLIC (ALLIUM SATIVUM) [Suspect]
  6. GINSENG /00480901/ [Suspect]
  7. ST. JOHN'S WORT (HYPERICUM PERFORATUM) [Suspect]
  8. ECHINACEA (ECHINACEA PURPUREA EXTRACT) [Concomitant]

REACTIONS (4)
  - ABDOMINAL PAIN UPPER [None]
  - DRUG EFFECT DECREASED [None]
  - DRUG INTERACTION [None]
  - HAEMATEMESIS [None]
